FAERS Safety Report 20433340 (Version 1)
Quarter: 2022Q1

REPORT INFORMATION
  Report Type: Spontaneous
  Country: ES (occurrence: ES)
  Receive Date: 20220205
  Receipt Date: 20220205
  Transmission Date: 20220423
  Serious: Yes (Other)
  Sender: FDA-Public Use
  Company Number: ES-Accord-252044

PATIENT
  Age: 67 Year
  Sex: Male

DRUGS (3)
  1. SPIRONOLACTONE [Interacting]
     Active Substance: SPIRONOLACTONE
     Indication: Cardiac failure
     Dosage: 25 MG DAILY
     Dates: start: 2016
  2. ABIRATERONE [Interacting]
     Active Substance: ABIRATERONE
     Indication: Prostate cancer
     Dosage: 1000 MG EVERY 24 H
     Dates: start: 201605
  3. PREDNISONE [Concomitant]
     Active Substance: PREDNISONE
     Indication: Prostate cancer
     Dosage: 5 MG EVERY 12 H TAKEN?FASTING
     Dates: start: 201605

REACTIONS (5)
  - Renal failure [Unknown]
  - Diarrhoea [Unknown]
  - Dehydration [Unknown]
  - Drug interaction [Unknown]
  - Prostatic specific antigen increased [Unknown]
